FAERS Safety Report 18387797 (Version 1)
Quarter: 2020Q4

REPORT INFORMATION
  Report Type: Spontaneous
  Country: PT (occurrence: PT)
  Receive Date: 20201015
  Receipt Date: 20201015
  Transmission Date: 20210114
  Serious: No
  Sender: FDA-Public Use
  Company Number: PT-LUPIN PHARMACEUTICALS INC.-2020-03379

PATIENT
  Sex: Female

DRUGS (4)
  1. GESTODENE [Suspect]
     Active Substance: GESTODENE
     Indication: STEROID THERAPY
  2. DESOGESTREL AND ETHINYL ESTRADIOL [Suspect]
     Active Substance: DESOGESTREL\ETHINYL ESTRADIOL
     Indication: HORMONE REPLACEMENT THERAPY
     Dosage: UNK (HAD BEEN RECEIVING FOR 14 YEARS)
     Route: 065
  3. DESOGESTREL AND ETHINYL ESTRADIOL [Suspect]
     Active Substance: DESOGESTREL\ETHINYL ESTRADIOL
     Indication: STEROID THERAPY
  4. GESTODENE [Suspect]
     Active Substance: GESTODENE
     Indication: HORMONE REPLACEMENT THERAPY
     Dosage: UNK (HAD BEEN RECEIVING FOR 14 YEARS)
     Route: 065

REACTIONS (2)
  - Phlebitis [Unknown]
  - Varicose vein [Unknown]
